FAERS Safety Report 14592940 (Version 2)
Quarter: 2018Q2

REPORT INFORMATION
  Report Type: Report from Study
  Country: US (occurrence: US)
  Receive Date: 20180302
  Receipt Date: 20180517
  Transmission Date: 20180711
  Serious: Yes (Death, Other)
  Sender: FDA-Public Use
  Company Number: US-REGENERON PHARMACEUTICALS, INC.-2018-15816

PATIENT

DRUGS (1)
  1. EYLEA [Suspect]
     Active Substance: AFLIBERCEPT
     Indication: MACULAR DEGENERATION
     Dosage: 2 MG / 0.5 ML, 4-6 WEEKS, RIGHT EYE
     Route: 031
     Dates: start: 20141021, end: 20171025

REACTIONS (1)
  - Death [Fatal]

NARRATIVE: CASE EVENT DATE: 20171025
